FAERS Safety Report 16067262 (Version 1)
Quarter: 2019Q1

REPORT INFORMATION
  Report Type: Spontaneous
  Country: JP (occurrence: JP)
  Receive Date: 20190313
  Receipt Date: 20190313
  Transmission Date: 20190418
  Serious: Yes (Death, Hospitalization, Other)
  Sender: FDA-Public Use
  Company Number: JP-PFIZER INC-2019110363

PATIENT
  Age: 72 Year
  Sex: Female
  Weight: 41.5 kg

DRUGS (6)
  1. ZALTRAP [Suspect]
     Active Substance: ZIV-AFLIBERCEPT
     Indication: COLON CANCER
     Dosage: 166 MG/BODY
     Route: 041
     Dates: start: 20180807, end: 20180807
  2. CAMPTO [Suspect]
     Active Substance: IRINOTECAN
     Indication: COLON CANCER
     Dosage: 100 MG/BODY (75.6 MG/M2)
     Route: 041
     Dates: start: 20180807, end: 20180807
  3. LEVOFOLINATE CALCIUM [Suspect]
     Active Substance: LEVOLEUCOVORIN CALCIUM
     Indication: COLON CANCER
     Dosage: 250 MG/BODY (189 MG/M2)
     Route: 041
     Dates: start: 20180807, end: 20180807
  4. GRANISETRON HYDROCHLORIDE. [Concomitant]
     Active Substance: GRANISETRON HYDROCHLORIDE
     Dosage: UNK
     Dates: start: 20180807, end: 20180807
  5. DEXART [Concomitant]
     Active Substance: DEXAMETHASONE SODIUM PHOSPHATE
     Dosage: UNK
     Dates: start: 20180807, end: 20180807
  6. FLUOROURACIL. [Suspect]
     Active Substance: FLUOROURACIL
     Indication: COLON CANCER
     Dosage: 3200 MG/BODY/D1-2 (2418.7 MG/M2/D1-2)
     Route: 041
     Dates: start: 20180807, end: 20180807

REACTIONS (4)
  - Haematochezia [Unknown]
  - Febrile neutropenia [Recovering/Resolving]
  - Eating disorder [Recovering/Resolving]
  - Diarrhoea [Recovered/Resolved]

NARRATIVE: CASE EVENT DATE: 20180815
